FAERS Safety Report 5357203-1 (Version None)
Quarter: 2007Q2

REPORT INFORMATION
  Report Type: 
  Country: None (occurrence: None)
  Receive Date: 20070614
  Receipt Date: 20070606
  Transmission Date: 20071010
  Serious: Yes (Other)
  Sender: FDA-Public Use
  Company Number: US-JNJFOC-20070601821

PATIENT
  Age: 50 Year
  Sex: Male
  Weight: 117.94 kg

DRUGS (3)
  1. HALDOL [Suspect]
     Indication: PSYCHOTIC DISORDER
     Route: 030
  2. RISPERDAL [Suspect]
     Indication: PSYCHOTIC DISORDER
     Route: 048
  3. ANTI-HYPERTENSIVE [Concomitant]
     Indication: HYPERTENSION
     Route: 048

REACTIONS (5)
  - BLOOD CALCIUM INCREASED [None]
  - CONFUSIONAL STATE [None]
  - HYPOKINESIA [None]
  - MENTAL IMPAIRMENT [None]
  - SOCIAL AVOIDANT BEHAVIOUR [None]
